FAERS Safety Report 10048636 (Version 1)
Quarter: 2014Q1

REPORT INFORMATION
  Report Type: Spontaneous
  Country: SE (occurrence: SE)
  Receive Date: 20140331
  Receipt Date: 20140331
  Transmission Date: 20141002
  Serious: Yes (Other)
  Sender: FDA-Public Use
  Company Number: SE-AMGEN-SWESP2014021599

PATIENT
  Age: 74 Year
  Sex: Female

DRUGS (1)
  1. PROLIA [Suspect]
     Indication: PRODUCT USED FOR UNKNOWN INDICATION
     Dosage: UNK
     Route: 065

REACTIONS (9)
  - Dyspnoea [Unknown]
  - Paraesthesia [Unknown]
  - Fatigue [Unknown]
  - Anxiety [Unknown]
  - Eye pruritus [Unknown]
  - Pollakiuria [Unknown]
  - Muscle spasms [Unknown]
  - Myalgia [Unknown]
  - Feeling of body temperature change [Unknown]
